FAERS Safety Report 19285113 (Version 1)
Quarter: 2021Q2

REPORT INFORMATION
  Report Type: Spontaneous
  Country: RU (occurrence: RU)
  Receive Date: 20210521
  Receipt Date: 20210521
  Transmission Date: 20210717
  Serious: Yes (Hospitalization)
  Sender: FDA-Public Use
  Company Number: RU-BIOGEN-2021BI00998895

PATIENT
  Age: 49 Year
  Sex: Male
  Weight: 78 kg

DRUGS (1)
  1. TYSABRI [Suspect]
     Active Substance: NATALIZUMAB
     Indication: MULTIPLE SCLEROSIS
     Dosage: 25 MG/ML 15 ML; 1 TIME PER 28/42 DAYS; 13 INFUSIONS
     Route: 065
     Dates: start: 20200116

REACTIONS (1)
  - Multiple sclerosis [Unknown]

NARRATIVE: CASE EVENT DATE: 20210331
